FAERS Safety Report 24283401 (Version 1)
Quarter: 2024Q3

REPORT INFORMATION
  Report Type: Report from Study
  Country: IN (occurrence: IN)
  Receive Date: 20240904
  Receipt Date: 20240904
  Transmission Date: 20241017
  Serious: Yes (Death)
  Sender: ROCHE
  Company Number: IN-ROCHE-10000049073

PATIENT
  Age: 90 Year
  Sex: Male

DRUGS (2)
  1. VABYSMO [Suspect]
     Active Substance: FARICIMAB\FARICIMAB-SVOA
     Indication: Choroidal neovascularisation
     Route: 050
     Dates: start: 20240511
  2. VABYSMO [Suspect]
     Active Substance: FARICIMAB\FARICIMAB-SVOA
     Indication: Neovascular age-related macular degeneration

REACTIONS (5)
  - Arthralgia [Unknown]
  - Lower respiratory tract infection [Fatal]
  - Hypotension [Fatal]
  - Blood glucose decreased [Fatal]
  - Full blood count abnormal [Fatal]

NARRATIVE: CASE EVENT DATE: 20240803
